FAERS Safety Report 9925969 (Version 2)
Quarter: 2014Q1

REPORT INFORMATION
  Report Type: Spontaneous
  Country: US (occurrence: US)
  Receive Date: 20140226
  Receipt Date: 20140226
  Transmission Date: 20141002
  Serious: No
  Sender: FDA-Public Use
  Company Number: US-BRACCO-009776

PATIENT
  Age: 75 Year
  Sex: Male
  Weight: 102 kg

DRUGS (15)
  1. ISOVUE 300 [Suspect]
     Indication: COMPUTERISED TOMOGRAM
     Dosage: 2 ML/S
     Route: 042
     Dates: start: 20130624, end: 20130624
  2. ALLOPURINOL [Concomitant]
  3. TAMSULOSIN [Concomitant]
  4. ATORVASTATIN [Concomitant]
  5. AMITRIPTYLINE [Concomitant]
  6. ALENDRONATE [Concomitant]
  7. STOOL SOFTENER [Concomitant]
  8. METOPROLOL [Concomitant]
  9. PLAVIX [Concomitant]
  10. GEMFIBROZIL [Concomitant]
  11. MULTIVITAMIN [Concomitant]
  12. RANITIDINE [Concomitant]
  13. OCUVITE LUTEIN [Concomitant]
  14. CALCIUM + VITAMIN D [Concomitant]
  15. VITAMIN D [Concomitant]

REACTIONS (1)
  - Dysphagia [Recovered/Resolved]
